FAERS Safety Report 14822106 (Version 1)
Quarter: 2018Q2

REPORT INFORMATION
  Report Type: Spontaneous
  Country: GB (occurrence: GB)
  Receive Date: 20180427
  Receipt Date: 20180427
  Transmission Date: 20180711
  Serious: Yes (Other)
  Sender: FDA-Public Use
  Company Number: GB-PFIZER INC-2018164611

PATIENT
  Age: 50 Year
  Sex: Male
  Weight: 76.2 kg

DRUGS (3)
  1. CHAMPIX [Suspect]
     Active Substance: VARENICLINE TARTRATE
     Dosage: 2 MG, ONCE DAILY
     Route: 048
     Dates: end: 20180312
  2. CHAMPIX [Suspect]
     Active Substance: VARENICLINE TARTRATE
     Indication: SMOKING CESSATION THERAPY
     Dosage: 1 MG, ONCE DAILY
     Route: 048
  3. TERBINAFINE. [Concomitant]
     Active Substance: TERBINAFINE
     Indication: NAIL INFECTION
     Dosage: UNK

REACTIONS (12)
  - Paranoia [Unknown]
  - Personality change [Unknown]
  - Psychiatric symptom [Unknown]
  - Confusional state [Unknown]
  - Rash [Unknown]
  - Abnormal dreams [Unknown]
  - Lacrimation increased [Unknown]
  - Memory impairment [Unknown]
  - Irritability [Unknown]
  - Suicidal ideation [Unknown]
  - Insomnia [Unknown]
  - Muscle spasms [Unknown]
